FAERS Safety Report 6259326-1 (Version None)
Quarter: 2009Q3

REPORT INFORMATION
  Report Type: 
  Country: None (occurrence: None)
  Receive Date: 20090702
  Receipt Date: 20090619
  Transmission Date: 20100115
  Serious: Yes (Hospitalization)
  Sender: FDA-Public Use
  Company Number: 2008AL011330

PATIENT
  Sex: Female

DRUGS (6)
  1. DIGOXIN [Suspect]
     Indication: CARDIAC FAILURE CONGESTIVE
     Dosage: 0.125MG, PO
     Route: 048
  2. DILTIAZ [Concomitant]
  3. ALBUTEROL [Concomitant]
  4. FUROSEMIDE [Concomitant]
  5. KLOR-CON [Concomitant]
  6. LISINOPRIL [Concomitant]

REACTIONS (11)
  - ANHEDONIA [None]
  - ANXIETY [None]
  - CHEST PAIN [None]
  - ECONOMIC PROBLEM [None]
  - HEART RATE IRREGULAR [None]
  - INCORRECT DOSE ADMINISTERED [None]
  - INJURY [None]
  - NAUSEA [None]
  - PAIN [None]
  - PALPITATIONS [None]
  - THERAPEUTIC AGENT TOXICITY [None]
